FAERS Safety Report 4426361-5 (Version None)
Quarter: 2004Q3

REPORT INFORMATION
  Report Type: 
  Country: None (occurrence: None)
  Receive Date: 20040811
  Receipt Date: 20040727
  Transmission Date: 20050211
  Serious: Yes (Death)
  Sender: FDA-Public Use
  Company Number: 205760

PATIENT
  Age: 66 Year
  Sex: Female

DRUGS (3)
  1. HERCEPTIN [Suspect]
     Indication: BREAST CANCER METASTATIC
     Dosage: 227 MG, SINGLE, INTRAVENOUS;  113 MG, 1/WEEK, INTRAVENOUS
     Route: 042
     Dates: start: 20040227, end: 20040227
  2. HERCEPTIN [Suspect]
     Indication: BREAST CANCER METASTATIC
     Dosage: 227 MG, SINGLE, INTRAVENOUS;  113 MG, 1/WEEK, INTRAVENOUS
     Route: 042
     Dates: start: 20040305, end: 20040311
  3. PACLITAXEL [Concomitant]

REACTIONS (17)
  - ANURIA [None]
  - BRONCHITIS [None]
  - BRONCHOPNEUMONIA [None]
  - CEREBRAL ATHEROSCLEROSIS [None]
  - CONDITION AGGRAVATED [None]
  - HAEMOSIDEROSIS [None]
  - HEPATIC NECROSIS [None]
  - METASTASES TO MENINGES [None]
  - MULTI-ORGAN FAILURE [None]
  - PULMONARY CONGESTION [None]
  - PULMONARY EMBOLISM [None]
  - PULMONARY OEDEMA [None]
  - PURULENCE [None]
  - RENAL ARTERIOSCLEROSIS [None]
  - RENAL FAILURE [None]
  - SHOCK [None]
  - SOMNOLENCE [None]
